FAERS Safety Report 8889159 (Version 1)
Quarter: 2012Q4

REPORT INFORMATION
  Report Type: 
  Country: US (occurrence: US)
  Receive Date: 20121106
  Receipt Date: 20121106
  Transmission Date: 20130627
  Serious: Yes (Hospitalization)
  Sender: FDA-Public Use
  Company Number: US-BAXTER-2012BAX022274

PATIENT
  Sex: Female

DRUGS (3)
  1. DIANEAL PD2 [Suspect]
     Indication: PERITONEAL DIALYSIS
     Route: 033
     Dates: start: 20111212
  2. DIANEAL PD2 [Suspect]
     Indication: PERITONEAL DIALYSIS
     Route: 033
     Dates: start: 20111212
  3. DIANEAL PD2 [Suspect]
     Indication: PERITONEAL DIALYSIS
     Route: 033
     Dates: start: 20111212

REACTIONS (5)
  - Herpes zoster [Recovering/Resolving]
  - Fall [Recovering/Resolving]
  - Arthropathy [Recovering/Resolving]
  - Contusion [Recovering/Resolving]
  - Urticaria [Recovering/Resolving]
